FAERS Safety Report 12968663 (Version 3)
Quarter: 2016Q4

REPORT INFORMATION
  Report Type: Report from Study
  Country: CI (occurrence: CI)
  Receive Date: 20161123
  Receipt Date: 20161207
  Transmission Date: 20170207
  Serious: Yes (Hospitalization, Other)
  Sender: FDA-Public Use
  Company Number: CI-BRISTOL-MYERS SQUIBB COMPANY-BMS-2016-068157

PATIENT
  Age: 48 Year
  Sex: Male
  Weight: 65.7 kg

DRUGS (4)
  1. DALACIN C                          /00166001/ [Concomitant]
     Indication: PRODUCT USED FOR UNKNOWN INDICATION
     Dosage: 1 DF, QD
     Route: 048
     Dates: start: 20160808
  2. EFAVIRENZ [Suspect]
     Active Substance: EFAVIRENZ
     Indication: TUBERCULOSIS
     Dosage: 1 DF, QD
     Route: 065
     Dates: start: 20160802
  3. LAMIVUDINE. [Suspect]
     Active Substance: LAMIVUDINE
     Indication: TUBERCULOSIS
     Dosage: UNK
     Route: 065
     Dates: start: 20160802
  4. TENOFOVIR DISOPROXIL FUMARATE. [Suspect]
     Active Substance: TENOFOVIR DISOPROXIL FUMARATE
     Indication: TUBERCULOSIS
     Dosage: 1 DF, QD
     Route: 065
     Dates: start: 20160802

REACTIONS (1)
  - Toxoplasmosis [Recovered/Resolved]

NARRATIVE: CASE EVENT DATE: 20160808
